FAERS Safety Report 15313087 (Version 1)
Quarter: 2018Q3

REPORT INFORMATION
  Report Type: Spontaneous
  Country: BR (occurrence: BR)
  Receive Date: 20180823
  Receipt Date: 20180823
  Transmission Date: 20181010
  Serious: Yes (Death, Other)
  Sender: FDA-Public Use
  Company Number: BR-PFIZER INC-2018339925

PATIENT
  Sex: Female

DRUGS (1)
  1. XELJANZ [Suspect]
     Active Substance: TOFACITINIB CITRATE
     Indication: RHEUMATOID ARTHRITIS

REACTIONS (6)
  - Pneumonia [Fatal]
  - Osteoarthritis [Unknown]
  - Cardiac failure congestive [Fatal]
  - Gait disturbance [Unknown]
  - Hypertension [Fatal]
  - Infection [Fatal]
